FAERS Safety Report 20314888 (Version 1)
Quarter: 2022Q1

REPORT INFORMATION
  Report Type: Spontaneous
  Country: US (occurrence: US)
  Receive Date: 20220110
  Receipt Date: 20220110
  Transmission Date: 20220423
  Serious: Yes (Other)
  Sender: FDA-Public Use
  Company Number: US-INTRA-CELLULAR THERAPIES, INC.-2021ICT00750

PATIENT
  Age: 5 Decade
  Sex: Male

DRUGS (1)
  1. CAPLYTA [Suspect]
     Active Substance: LUMATEPERONE
     Indication: Bipolar disorder
     Dosage: UNK
     Dates: start: 20211207, end: 202112

REACTIONS (2)
  - Deep vein thrombosis [Unknown]
  - Pulmonary embolism [Unknown]

NARRATIVE: CASE EVENT DATE: 20211201
